FAERS Safety Report 8762519 (Version 2)
Quarter: 2012Q4

REPORT INFORMATION
  Report Type: 
  Country: US (occurrence: US)
  Receive Date: 20120830
  Receipt Date: 20121120
  Transmission Date: 20130627
  Serious: Yes (Life-Threatening, Hospitalization)
  Sender: FDA-Public Use
  Company Number: US-BRISTOL-MYERS SQUIBB COMPANY-16874414

PATIENT
  Age: 73 Year
  Sex: Male

DRUGS (15)
  1. COUMADIN [Suspect]
     Indication: ATRIAL FIBRILLATION
     Dosage: Dose decreased
     Route: 048
  2. VALACYCLOVIR [Interacting]
     Indication: HERPES VIRUS INFECTION
     Dosage: caplet
inter on 27Jun2012 and restat on 29Jun2012
     Route: 048
     Dates: start: 20120618
  3. DIGOXIN [Concomitant]
  4. OMEPRAZOLE [Concomitant]
  5. PREDNISONE [Concomitant]
  6. BACTROBAN OINTMENT [Concomitant]
  7. ZOVIRAX OINTMENT [Concomitant]
  8. LANTUS [Concomitant]
  9. MELOXICAM [Concomitant]
  10. HUMALOG [Concomitant]
  11. TAMSULOSIN [Concomitant]
  12. LISINOPRIL [Concomitant]
  13. METOPROLOL [Concomitant]
  14. DIGOXIN [Concomitant]
  15. FEXOFENADINE HCL [Concomitant]

REACTIONS (3)
  - Coagulopathy [Recovered/Resolved]
  - General physical health deterioration [Recovered/Resolved]
  - Drug interaction [Unknown]
